FAERS Safety Report 20545227 (Version 2)
Quarter: 2022Q1

REPORT INFORMATION
  Report Type: Spontaneous
  Country: JP (occurrence: JP)
  Receive Date: 20220303
  Receipt Date: 20220330
  Transmission Date: 20220423
  Serious: Yes (Other)
  Sender: FDA-Public Use
  Company Number: JP-ONO-2022JP005583

PATIENT
  Age: 4 Decade
  Sex: Female

DRUGS (2)
  1. EMEND [Suspect]
     Active Substance: APREPITANT
     Indication: Prophylaxis of nausea and vomiting
     Dosage: UNK
     Route: 048
     Dates: start: 20220225
  2. ALOXI [Suspect]
     Active Substance: PALONOSETRON HYDROCHLORIDE
     Indication: Colon cancer
     Dosage: UNK
     Route: 065
     Dates: start: 20220225

REACTIONS (5)
  - Arrhythmia [Recovered/Resolved]
  - Arrhythmia [Recovered/Resolved]
  - Extrasystoles [Recovered/Resolved]
  - Extrasystoles [Recovered/Resolved]
  - Nausea [Unknown]

NARRATIVE: CASE EVENT DATE: 20220225
